FAERS Safety Report 4641067-5 (Version None)
Quarter: 2005Q2

REPORT INFORMATION
  Report Type: 
  Country: None (occurrence: None)
  Receive Date: 20050419
  Receipt Date: 20050419
  Transmission Date: 20051028
  Serious: Yes (Hospitalization)
  Sender: FDA-Public Use
  Company Number: None

PATIENT
  Age: 52 Year
  Sex: Male
  Weight: 65.8 kg

DRUGS (8)
  1. PHENYTOIN [Suspect]
     Indication: CONVULSION
     Dosage: 500MG, 200MG QA, ORAL
     Route: 048
  2. PAROXETINE HCL [Concomitant]
  3. ALPRAZOLAM [Concomitant]
  4. AMLODIPINE BESYLATE [Concomitant]
  5. THIAMINE HCL [Concomitant]
  6. CLOPIDOGREL BISULFATE [Concomitant]
  7. FOLIC ACID [Concomitant]
  8. HYDROCHLOROTHIAZIDE [Concomitant]

REACTIONS (1)
  - DRUG TOXICITY [None]
